FAERS Safety Report 8430088-2 (Version None)
Quarter: 2012Q2

REPORT INFORMATION
  Report Type: 
  Country: None (occurrence: None)
  Receive Date: 20120612
  Receipt Date: 20120609
  Transmission Date: 20120825
  Serious: Yes (Other)
  Sender: FDA-Public Use
  Company Number: CN-ROCHE-1076780

PATIENT
  Sex: Female

DRUGS (2)
  1. XELODA [Suspect]
     Indication: METASTATIC GASTRIC CANCER
     Dosage: 1000MG TWICE A DAY FROM DAY1 TO DAY14
  2. OXALIPLATIN [Concomitant]
     Indication: METASTATIC GASTRIC CANCER
     Dosage: DAY1

REACTIONS (3)
  - CARCINOEMBRYONIC ANTIGEN INCREASED [None]
  - METASTASES TO LIVER [None]
  - DRUG RESISTANCE [None]
